FAERS Safety Report 22677387 (Version 3)
Quarter: 2023Q4

REPORT INFORMATION
  Report Type: Spontaneous
  Country: IT (occurrence: None)
  Receive Date: 20230706
  Receipt Date: 20231218
  Transmission Date: 20240109
  Serious: Yes (Death, Hospitalization)
  Sender: FDA-Public Use
  Company Number: 2023A140931

PATIENT
  Age: 17 Year
  Sex: Female

DRUGS (19)
  1. PROPOFOL [Suspect]
     Active Substance: PROPOFOL
     Indication: Product use issue
  2. ROPIVACAINE [Suspect]
     Active Substance: ROPIVACAINE
     Indication: Analgesic therapy
     Dosage: INFUSION
  3. OMEPRAZOLE [Suspect]
     Active Substance: OMEPRAZOLE
     Route: 048
  4. MIDAZOLAM [Suspect]
     Active Substance: MIDAZOLAM
     Indication: Palliative sedation
     Route: 042
  5. PREGABALIN [Suspect]
     Active Substance: PREGABALIN
     Dates: start: 2022
  6. COTRIMOXAZOLE [Suspect]
     Active Substance: SULFAMETHOXAZOLE\TRIMETHOPRIM
     Indication: Pain
  7. COTRIMOXAZOLE [Suspect]
     Active Substance: SULFAMETHOXAZOLE\TRIMETHOPRIM
     Indication: Ewing^s sarcoma
  8. COTRIMOXAZOLE [Suspect]
     Active Substance: SULFAMETHOXAZOLE\TRIMETHOPRIM
     Indication: Palliative care
  9. DEXAMETHASONE PHOSPHATE [Suspect]
     Active Substance: DEXAMETHASONE PHOSPHATE
     Indication: Ewing^s sarcoma
     Dates: start: 2022
  10. DEXAMETHASONE PHOSPHATE [Suspect]
     Active Substance: DEXAMETHASONE PHOSPHATE
     Indication: Palliative care
     Dates: start: 2022
  11. DEXAMETHASONE PHOSPHATE [Suspect]
     Active Substance: DEXAMETHASONE PHOSPHATE
     Indication: Pain
     Dates: start: 2022
  12. DULOXETINE [Suspect]
     Active Substance: DULOXETINE
  13. FENTANYL [Suspect]
     Active Substance: FENTANYL\FENTANYL CITRATE
     Route: 062
  14. ONDANSETRON [Suspect]
     Active Substance: ONDANSETRON
  15. ACETAMINOPHEN [Suspect]
     Active Substance: ACETAMINOPHEN
     Dosage: AS NECESSARY
  16. MORPHINE [Suspect]
     Active Substance: MORPHINE
     Indication: Palliative sedation
     Dosage: IMMEDIATE-RELEASE, AS NECESSARY
     Route: 048
  17. MORPHINE [Suspect]
     Active Substance: MORPHINE
     Indication: Palliative sedation
     Route: 042
  18. MORPHINE [Suspect]
     Active Substance: MORPHINE
     Indication: Palliative sedation
     Dosage: INFUSION
     Route: 042
  19. CLONIDINE [Suspect]
     Active Substance: CLONIDINE
     Indication: Palliative sedation

REACTIONS (16)
  - Psychomotor hyperactivity [Unknown]
  - Haematuria [Unknown]
  - Urine output decreased [Unknown]
  - Feeling of despair [Unknown]
  - Asthenia [Unknown]
  - Decreased appetite [Unknown]
  - Weight decreased [Unknown]
  - Anxiety [Unknown]
  - Dyspnoea [Unknown]
  - Pyrexia [Unknown]
  - Vomiting [Unknown]
  - Nausea [Unknown]
  - Pain [Fatal]
  - Pain [Not Recovered/Not Resolved]
  - Drug ineffective [Fatal]
  - Product use in unapproved indication [Fatal]

NARRATIVE: CASE EVENT DATE: 20220101
